FAERS Safety Report 13027580 (Version 1)
Quarter: 2016Q4

REPORT INFORMATION
  Report Type: Spontaneous
  Country: LU (occurrence: BE)
  Receive Date: 20161214
  Receipt Date: 20161214
  Transmission Date: 20170207
  Serious: Yes (Death)
  Sender: FDA-Public Use
  Company Number: LU-NOVOPROD-521880

PATIENT
  Age: 27 Year
  Sex: Male

DRUGS (1)
  1. NOVOSEVEN [Suspect]
     Active Substance: COAGULATION FACTOR VIIA RECOMBINANT HUMAN
     Indication: HAEMORRHAGE
     Dosage: 2 MG
     Route: 065

REACTIONS (3)
  - Off label use [Unknown]
  - Haemorrhage [Fatal]
  - Chest injury [Fatal]

NARRATIVE: CASE EVENT DATE: 20161127
